FAERS Safety Report 7268799-7 (Version None)
Quarter: 2011Q1

REPORT INFORMATION
  Report Type: 
  Country: None (occurrence: None)
  Receive Date: 20110201
  Receipt Date: 20110119
  Transmission Date: 20110831
  Serious: Yes (Hospitalization, Other)
  Sender: FDA-Public Use
  Company Number: US-CELGENEUS-163-21880-11012223

PATIENT
  Sex: Male

DRUGS (5)
  1. REVLIMID [Suspect]
     Indication: MULTIPLE MYELOMA
     Route: 048
     Dates: start: 20090909, end: 20101006
  2. LOVENOX [Concomitant]
     Indication: PULMONARY EMBOLISM
     Route: 065
  3. FLOMAX [Concomitant]
     Route: 065
  4. ZOCOR [Concomitant]
     Route: 065
  5. COUMADIN [Concomitant]
     Route: 065

REACTIONS (2)
  - BUNDLE BRANCH BLOCK RIGHT [None]
  - CEREBROVASCULAR ACCIDENT [None]
